FAERS Safety Report 16243234 (Version 1)
Quarter: 2019Q2

REPORT INFORMATION
  Report Type: Spontaneous
  Country: US (occurrence: US)
  Receive Date: 20190426
  Receipt Date: 20190426
  Transmission Date: 20190711
  Serious: No
  Sender: FDA-Public Use
  Company Number: US-MICRO LABS LIMITED-ML2019-00898

PATIENT
  Age: 60 Year
  Sex: Female

DRUGS (2)
  1. ATENOLOL. [Concomitant]
     Active Substance: ATENOLOL
     Indication: HYPERTENSION
     Dosage: SHE TOOK LOW DOSE
  2. CELECOXIB CAPSULES, 200 MG [Suspect]
     Active Substance: CELECOXIB
     Dates: start: 20181227

REACTIONS (8)
  - Hypotension [Not Recovered/Not Resolved]
  - Feeling abnormal [Not Recovered/Not Resolved]
  - Disturbance in attention [Not Recovered/Not Resolved]
  - Memory impairment [Not Recovered/Not Resolved]
  - Nausea [Not Recovered/Not Resolved]
  - Product substitution issue [Not Recovered/Not Resolved]
  - Decreased activity [Not Recovered/Not Resolved]
  - Dizziness [Not Recovered/Not Resolved]
